FAERS Safety Report 6310823-X (Version None)
Quarter: 2009Q3

REPORT INFORMATION
  Report Type: 
  Country: None (occurrence: None)
  Receive Date: 20090812
  Receipt Date: 20090804
  Transmission Date: 20100115
  Serious: Yes (Other)
  Sender: FDA-Public Use
  Company Number: SPV1-2009-01606

PATIENT
  Age: 9 Year
  Sex: Male
  Weight: 40.8 kg

DRUGS (2)
  1. DAYTRANA      (METHYLPHENIDATE) TRANSDERMAL PATCH [Suspect]
     Indication: ATTENTION DEFICIT/HYPERACTIVITY DISORDER
     Dosage: 1X/DAY;QD, TRANSDERMAL
     Route: 062
     Dates: start: 20070101, end: 20070801
  2. ZYRTEC [Concomitant]

REACTIONS (2)
  - CHEST PAIN [None]
  - SUPRAVENTRICULAR TACHYCARDIA [None]
